FAERS Safety Report 22140012 (Version 8)
Quarter: 2025Q1

REPORT INFORMATION
  Report Type: Report from Study
  Country: DE (occurrence: DE)
  Receive Date: 20230327
  Receipt Date: 20250203
  Transmission Date: 20250409
  Serious: Yes (Other)
  Sender: ROCHE
  Company Number: DE-ROCHE-2572788

PATIENT
  Age: 51 Year
  Sex: Female

DRUGS (20)
  1. OCREVUS [Suspect]
     Active Substance: OCRELIZUMAB
     Indication: Relapsing-remitting multiple sclerosis
     Dosage: 600 MG FREQUENCY: 182 DAYS
     Route: 040
     Dates: start: 20200220
  2. OCREVUS [Suspect]
     Active Substance: OCRELIZUMAB
     Route: 040
  3. OCREVUS [Suspect]
     Active Substance: OCRELIZUMAB
     Route: 040
     Dates: start: 202102
  4. OCREVUS [Suspect]
     Active Substance: OCRELIZUMAB
     Route: 040
     Dates: start: 20210225
  5. OCREVUS [Suspect]
     Active Substance: OCRELIZUMAB
     Route: 040
     Dates: start: 20210902
  6. OCREVUS [Suspect]
     Active Substance: OCRELIZUMAB
     Route: 040
  7. OCREVUS [Suspect]
     Active Substance: OCRELIZUMAB
     Route: 040
  8. OCREVUS [Suspect]
     Active Substance: OCRELIZUMAB
     Route: 040
     Dates: start: 202403
  9. OCREVUS [Suspect]
     Active Substance: OCRELIZUMAB
     Route: 040
  10. COMIRNATY (TOZINAMERAN) [Suspect]
     Active Substance: TOZINAMERAN
     Indication: COVID-19
     Route: 065
  11. COMIRNATY (TOZINAMERAN) [Suspect]
     Active Substance: TOZINAMERAN
     Route: 065
     Dates: end: 20210507
  12. INSULIN NOS [Concomitant]
     Active Substance: INSULIN NOS
  13. LEVOTHYROXINE [Concomitant]
     Active Substance: LEVOTHYROXINE
  14. NABIXIMOLS [Concomitant]
     Active Substance: NABIXIMOLS
  15. GABAPENTIN [Concomitant]
     Active Substance: GABAPENTIN
  16. PIRACETAM [Concomitant]
     Active Substance: PIRACETAM
  17. NOVALGIN (METAMIZOLE SODIUM) [Concomitant]
     Active Substance: METAMIZOLE SODIUM
  18. CHOLECALCIFEROL [Concomitant]
     Active Substance: CHOLECALCIFEROL
  19. LEVETIRACETAM [Concomitant]
     Active Substance: LEVETIRACETAM
  20. PALEXIA [Concomitant]
     Active Substance: TAPENTADOL HYDROCHLORIDE
     Dosage: RETARD 0-1-2 SLOW-RELEASE

REACTIONS (25)
  - Fatigue [Not Recovered/Not Resolved]
  - Blood pressure decreased [Recovered/Resolved]
  - Arthralgia [Recovered/Resolved]
  - Peripheral swelling [Not Recovered/Not Resolved]
  - Blood glucose fluctuation [Recovered/Resolved]
  - Muscle spasticity [Recovered/Resolved]
  - Drug ineffective [Unknown]
  - Dysaesthesia [Recovered/Resolved]
  - Disturbance in attention [Recovered/Resolved]
  - Gait disturbance [Recovered/Resolved]
  - Product administration error [Unknown]
  - SARS-CoV-2 antibody test negative [Not Recovered/Not Resolved]
  - Vision blurred [Recovered/Resolved]
  - Pain in extremity [Recovered/Resolved]
  - Liver function test increased [Recovered/Resolved]
  - White blood cell count increased [Recovering/Resolving]
  - Platelet count increased [Recovering/Resolving]
  - Blood creatinine increased [Recovered/Resolved]
  - Blood viscosity increased [Recovered/Resolved]
  - COVID-19 [Recovered/Resolved]
  - Muscular weakness [Not Recovered/Not Resolved]
  - Multiple sclerosis relapse [Unknown]
  - Blood viscosity increased [Unknown]
  - Muscular weakness [Unknown]
  - Hemiparesis [Recovered/Resolved]

NARRATIVE: CASE EVENT DATE: 20200220
